FAERS Safety Report 7876108-5 (Version None)
Quarter: 2011Q4

REPORT INFORMATION
  Report Type: 
  Country: None (occurrence: None)
  Receive Date: 20111031
  Receipt Date: 20111020
  Transmission Date: 20120403
  Serious: Yes (Other)
  Sender: FDA-Public Use
  Company Number: CA-JNJFOC-20110810544

PATIENT
  Sex: Female
  Weight: 62 kg

DRUGS (1)
  1. REMICADE [Suspect]
     Indication: CROHN'S DISEASE
     Route: 042
     Dates: start: 20110501

REACTIONS (5)
  - DIARRHOEA [None]
  - VAGINAL INFECTION [None]
  - ABDOMINAL PAIN [None]
  - CROHN'S DISEASE [None]
  - GASTROINTESTINAL HAEMORRHAGE [None]
